FAERS Safety Report 5583597-8 (Version None)
Quarter: 2008Q1

REPORT INFORMATION
  Report Type: 
  Country: None (occurrence: None)
  Receive Date: 20080107
  Receipt Date: 20080103
  Transmission Date: 20080703
  Serious: Yes (Other)
  Sender: FDA-Public Use
  Company Number: GR-MERCK-0801GRC00001

PATIENT
  Age: 27 Month
  Sex: Female
  Weight: 17 kg

DRUGS (3)
  1. SINGULAIR [Suspect]
     Indication: ASTHMA
     Route: 048
     Dates: start: 20070901, end: 20070901
  2. SINGULAIR [Suspect]
     Route: 048
     Dates: start: 20070901, end: 20071015
  3. FLIXOTIDE [Concomitant]
     Indication: ASTHMA
     Dates: start: 20070901

REACTIONS (2)
  - ABDOMINAL PAIN [None]
  - CONSTIPATION [None]
